FAERS Safety Report 23113384 (Version 1)
Quarter: 2023Q4

REPORT INFORMATION
  Report Type: Spontaneous
  Country: US (occurrence: US)
  Receive Date: 20231027
  Receipt Date: 20231027
  Transmission Date: 20240110
  Serious: Yes (Other)
  Sender: FDA-Public Use
  Company Number: US-BAUSCH-BL-2023-015939

PATIENT
  Age: 70 Year
  Sex: Female

DRUGS (4)
  1. PLENVU [Suspect]
     Active Substance: ASCORBIC ACID\POLYETHYLENE GLYCOL 3350\POTASSIUM CHLORIDE\SODIUM ASCORBATE\SODIUM CHLORIDE\SODIUM SU
     Indication: Colonoscopy
     Route: 048
     Dates: start: 20231022
  2. ZOLOFT [Concomitant]
     Active Substance: SERTRALINE HYDROCHLORIDE
     Indication: Product used for unknown indication
     Route: 065
  3. XANAX [Concomitant]
     Active Substance: ALPRAZOLAM
     Indication: Product used for unknown indication
     Route: 065
  4. AMLODIPINE [Concomitant]
     Active Substance: AMLODIPINE BESYLATE
     Indication: Product used for unknown indication
     Route: 065

REACTIONS (7)
  - Lung hyperinflation [Recovering/Resolving]
  - Balance disorder [Recovering/Resolving]
  - Feeling abnormal [Recovering/Resolving]
  - Electrocardiogram abnormal [Recovering/Resolving]
  - Chest pain [Not Recovered/Not Resolved]
  - Dry mouth [Recovering/Resolving]
  - Hypertension [Recovering/Resolving]

NARRATIVE: CASE EVENT DATE: 20231022
